FAERS Safety Report 5285574-3 (Version None)
Quarter: 2007Q1

REPORT INFORMATION
  Report Type: 
  Country: None (occurrence: None)
  Receive Date: 20061229
  Receipt Date: 20061017
  Transmission Date: 20070707
  Serious: Yes (Other)
  Sender: FDA-Public Use
  Company Number: 2006UW20033

PATIENT
  Sex: Female

DRUGS (2)
  1. CRESTOR [Suspect]
     Dates: start: 20040101, end: 20060101
  2. ALCOHOL [Suspect]

REACTIONS (2)
  - ALCOHOL INTERACTION [None]
  - NAUSEA [None]
